FAERS Safety Report 5625731-7 (Version None)
Quarter: 2008Q1

REPORT INFORMATION
  Report Type: 
  Country: None (occurrence: None)
  Receive Date: 20080207
  Receipt Date: 20080207
  Transmission Date: 20080703
  Serious: Yes (Other)
  Sender: FDA-Public Use
  Company Number: None

PATIENT
  Sex: Female
  Weight: 26.989 kg

DRUGS (1)
  1. PHENOBARBITAL    32.4MG  TABLET    QUALITEST/ RITEAID DRUGSTORE.COM [Suspect]
     Indication: EPILEPSY
     Dosage: 1 TABLET  2 TIMES PER DAY  PO
     Route: 048
     Dates: start: 20080103, end: 20080130

REACTIONS (3)
  - DRUG LEVEL DECREASED [None]
  - EPILEPSY [None]
  - PHARMACEUTICAL PRODUCT COMPLAINT [None]
